FAERS Safety Report 17185687 (Version 1)
Quarter: 2019Q4

REPORT INFORMATION
  Report Type: Spontaneous
  Country: CN (occurrence: CN)
  Receive Date: 20191220
  Receipt Date: 20191220
  Transmission Date: 20200122
  Serious: Yes (Death, Hospitalization)
  Sender: FDA-Public Use
  Company Number: CN-PFIZER INC-2019545246

PATIENT
  Age: 70 Year
  Sex: Female

DRUGS (1)
  1. IBRANCE [Suspect]
     Active Substance: PALBOCICLIB
     Indication: BREAST CANCER
     Dosage: 100 MG, 1X/DAY
     Route: 048
     Dates: start: 20190806

REACTIONS (5)
  - Dyspnoea [Unknown]
  - Abdominal distension [Fatal]
  - Decreased appetite [Unknown]
  - Listless [Unknown]
  - Ascites [Fatal]
